FAERS Safety Report 8517111-1 (Version None)
Quarter: 2012Q3

REPORT INFORMATION
  Report Type: 
  Country: None (occurrence: None)
  Receive Date: 20120718
  Receipt Date: 20120706
  Transmission Date: 20120928
  Serious: Yes (Disabling)
  Sender: FDA-Public Use
  Company Number: FR-BRISTOL-MYERS SQUIBB COMPANY-16756603

PATIENT
  Age: 63 Year
  Sex: Female

DRUGS (10)
  1. METHOTREXATE [Suspect]
     Route: 048
     Dates: start: 19960205
  2. HUMIRA [Suspect]
     Route: 042
     Dates: start: 20081001, end: 20090301
  3. PLAQUENIL [Suspect]
     Route: 048
     Dates: start: 19941201
  4. PREDNISONE TAB [Suspect]
     Dosage: ALSO TAKEN 8MG
     Route: 048
     Dates: start: 19950220
  5. CYTOTEC [Suspect]
     Route: 048
     Dates: start: 19981201
  6. ORENCIA [Suspect]
     Indication: RHEUMATOID ARTHRITIS
     Route: 042
     Dates: start: 20110201
  7. PENTASA [Suspect]
     Route: 048
     Dates: start: 19960101
  8. ENBREL [Suspect]
     Route: 042
     Dates: start: 20080501, end: 20081001
  9. PROTELOS [Suspect]
     Indication: OSTEOPOROSIS
     Dates: start: 20110218, end: 20110913
  10. ACTONEL [Suspect]
     Indication: OSTEOPOROSIS
     Route: 048
     Dates: start: 20020604, end: 20100614

REACTIONS (1)
  - BONE FISSURE [None]
